FAERS Safety Report 4823686-6 (Version None)
Quarter: 2005Q4

REPORT INFORMATION
  Report Type: 
  Country: None (occurrence: None)
  Receive Date: 20051107
  Receipt Date: 20051024
  Transmission Date: 20060501
  Serious: Yes (Other)
  Sender: FDA-Public Use
  Company Number: 2005148145

PATIENT
  Age: 74 Year
  Sex: Female

DRUGS (2)
  1. TOLTERODINE TARTRATE [Suspect]
     Indication: HYPERTONIC BLADDER
     Dosage: ORAL
     Route: 048
  2. ALENDRONIC ACID (ALENDRONIC ACID) [Concomitant]

REACTIONS (3)
  - DIZZINESS [None]
  - FALL [None]
  - FOOT FRACTURE [None]
